FAERS Safety Report 8134390-3 (Version None)
Quarter: 2012Q1

REPORT INFORMATION
  Report Type: 
  Country: None (occurrence: None)
  Receive Date: 20120209
  Receipt Date: 20120127
  Transmission Date: 20120608
  Serious: Yes (Life-Threatening, Hospitalization)
  Sender: FDA-Public Use
  Company Number: 2012AP000242

PATIENT
  Age: 65 Year
  Sex: Male

DRUGS (4)
  1. CIPROFLOXACIN [Suspect]
     Indication: URINARY TRACT INFECTION
     Dosage: 500 MG;BID;
  2. ALBUTEROL SULFATE AUTOHALER [Concomitant]
  3. COMBIVENT [Concomitant]
  4. CITALOPRAM HYDROBROMIDE [Suspect]
     Indication: DEPRESSION
     Dosage: 60 MG;QD;

REACTIONS (8)
  - URINARY TRACT INFECTION [None]
  - DRUG INTERACTION [None]
  - MENTAL STATUS CHANGES [None]
  - EJECTION FRACTION DECREASED [None]
  - TORSADE DE POINTES [None]
  - CONVULSION [None]
  - VENTRICULAR EXTRASYSTOLES [None]
  - INTERSTITIAL LUNG DISEASE [None]
